FAERS Safety Report 24890627 (Version 1)
Quarter: 2025Q1

REPORT INFORMATION
  Report Type: Spontaneous
  Country: US (occurrence: None)
  Receive Date: 20250127
  Receipt Date: 20250127
  Transmission Date: 20250409
  Serious: Yes (Hospitalization)
  Sender: FDA-CTU
  Company Number: None

PATIENT
  Sex: Male

DRUGS (2)
  1. VIGABATRIN [Suspect]
     Active Substance: VIGABATRIN
     Indication: Partial seizures
     Dosage: TAKE 2 TABLETS (1,000 MG) BY MOUTH EVERY MORNING AND 3 TABLETS (1,500 MG)  EVERY EVENING.
     Route: 048
     Dates: start: 202410
  2. EVEROLIMUS [Suspect]
     Active Substance: EVEROLIMUS
     Indication: Tuberous sclerosis complex
     Dosage: 10MG DAILY PO?
     Route: 048
     Dates: start: 202410

REACTIONS (3)
  - Pyrexia [None]
  - Nausea [None]
  - Vomiting [None]
